FAERS Safety Report 12168227 (Version 1)
Quarter: 2016Q1

REPORT INFORMATION
  Report Type: Spontaneous
  Country: US (occurrence: US)
  Receive Date: 20160310
  Receipt Date: 20160310
  Transmission Date: 20160526
  Serious: No
  Sender: FDA-Public Use
  Company Number: US-PFIZER INC-2016088324

PATIENT
  Sex: Female

DRUGS (4)
  1. ROBAXIN [Suspect]
     Active Substance: METHOCARBAMOL
     Dosage: UNK
  2. MORPHINE SULFATE. [Suspect]
     Active Substance: MORPHINE SULFATE
     Dosage: UNK
  3. PROCHLORPERAZINE. [Suspect]
     Active Substance: PROCHLORPERAZINE
  4. CYCLOBENZAPRINE [Suspect]
     Active Substance: CYCLOBENZAPRINE
     Dosage: UNK

REACTIONS (1)
  - Drug hypersensitivity [Unknown]
